FAERS Safety Report 10026177 (Version 1)
Quarter: 2014Q1

REPORT INFORMATION
  Report Type: Spontaneous
  Country: US (occurrence: US)
  Receive Date: 20140320
  Receipt Date: 20140320
  Transmission Date: 20141002
  Serious: No
  Sender: FDA-Public Use
  Company Number: US-ALLERGAN-1320314US

PATIENT
  Age: 70 Year
  Sex: Female

DRUGS (2)
  1. LUMIGAN 0.01% [Suspect]
     Indication: GLAUCOMA
     Dosage: 2 GTT, QHS
     Route: 047
  2. TOPICAL STEROID [Concomitant]
     Indication: HYPERHIDROSIS
     Dosage: UNK
     Route: 061
     Dates: start: 1987

REACTIONS (4)
  - Visual acuity reduced [Not Recovered/Not Resolved]
  - Skin exfoliation [Not Recovered/Not Resolved]
  - Pruritus [Not Recovered/Not Resolved]
  - Dark circles under eyes [Not Recovered/Not Resolved]
